FAERS Safety Report 7533141-0 (Version None)
Quarter: 2011Q2

REPORT INFORMATION
  Report Type: 
  Country: None (occurrence: None)
  Receive Date: 20110608
  Receipt Date: 20020604
  Transmission Date: 20111010
  Serious: Yes (Death)
  Sender: FDA-Public Use
  Company Number: PHBS2002CA06431

PATIENT
  Sex: Male

DRUGS (4)
  1. ZOLOFT [Concomitant]
     Dosage: 200 MG, QID
     Route: 065
  2. ATIVAN [Concomitant]
     Route: 065
  3. ZOPICLONE [Concomitant]
     Route: 065
  4. CLOZAPINE [Suspect]
     Route: 048
     Dates: start: 19970220, end: 20020517

REACTIONS (1)
  - MYOCARDIAL INFARCTION [None]
